FAERS Safety Report 5031655-9 (Version None)
Quarter: 2006Q2

REPORT INFORMATION
  Report Type: 
  Country: None (occurrence: None)
  Receive Date: 20060621
  Receipt Date: 20060613
  Transmission Date: 20061013
  Serious: Yes (Hospitalization)
  Sender: FDA-Public Use
  Company Number: US-BRISTOL-MYERS SQUIBB COMPANY-13410568

PATIENT
  Age: 40 Year
  Sex: Male

DRUGS (2)
  1. ABILIFY [Suspect]
     Indication: MAJOR DEPRESSION
  2. CYMBALTA [Concomitant]

REACTIONS (3)
  - AKATHISIA [None]
  - PSYCHOTIC DISORDER [None]
  - RASH [None]
